FAERS Safety Report 5673609-5 (Version None)
Quarter: 2008Q2

REPORT INFORMATION
  Report Type: 
  Country: None (occurrence: None)
  Receive Date: 20080225
  Receipt Date: 20070131
  Transmission Date: 20081010
  Serious: Yes (Other)
  Sender: FDA-Public Use
  Company Number: WAES 0701USA05000

PATIENT
  Age: 57 Year
  Sex: Male

DRUGS (2)
  1. ZOCOR [Suspect]
     Dosage: 10 MG/DAILY/PO
     Route: 048
  2. NOXAFIL [Suspect]
     Dosage: 400 MG/BID/PO
     Route: 048

REACTIONS (1)
  - RHABDOMYOLYSIS [None]
